FAERS Safety Report 5946883-5 (Version None)
Quarter: 2008Q4

REPORT INFORMATION
  Report Type: 
  Country: None (occurrence: None)
  Receive Date: 20081107
  Receipt Date: 20081107
  Transmission Date: 20090506
  Serious: Yes (Hospitalization)
  Sender: FDA-Public Use
  Company Number: None

PATIENT
  Sex: Male
  Weight: 65.7716 kg

DRUGS (2)
  1. SERTRALINE [Suspect]
     Dosage: ONE TABLET DAILY PO
     Route: 048
  2. LORAZEPAM [Suspect]
     Indication: ANXIETY
     Dosage: ONE TABLET BID PO
     Route: 048

REACTIONS (11)
  - ABASIA [None]
  - AGGRESSION [None]
  - FALL [None]
  - HOSTILITY [None]
  - HYPERNATRAEMIA [None]
  - HYPOVOLAEMIA [None]
  - INCONTINENCE [None]
  - MENTAL STATUS CHANGES [None]
  - MUCOSAL DRYNESS [None]
  - REGURGITATION [None]
  - SPEECH DISORDER [None]
